FAERS Safety Report 14275118 (Version 1)
Quarter: 2017Q4

REPORT INFORMATION
  Report Type: Spontaneous
  Country: US (occurrence: US)
  Receive Date: 20171212
  Receipt Date: 20171212
  Transmission Date: 20180321
  Serious: No
  Sender: FDA-Public Use
  Company Number: US-GLAXOSMITHKLINE-US2017189523

PATIENT
  Sex: Male

DRUGS (1)
  1. NICORETTE [Suspect]
     Active Substance: NICOTINE
     Indication: SMOKING CESSATION THERAPY
     Dosage: UNK
     Dates: start: 20171206, end: 20171206

REACTIONS (1)
  - Accidental exposure to product [Not Recovered/Not Resolved]

NARRATIVE: CASE EVENT DATE: 20171206
